FAERS Safety Report 6633519-3 (Version None)
Quarter: 2010Q1

REPORT INFORMATION
  Report Type: 
  Country: None (occurrence: None)
  Receive Date: 20100312
  Receipt Date: 20090723
  Transmission Date: 20100710
  Serious: No
  Sender: FDA-Public Use
  Company Number: US-ABBOTT-09P-163-0587726-00

PATIENT
  Sex: Female
  Weight: 75.818 kg

DRUGS (1)
  1. ERYTHROMYCIN [Suspect]
     Indication: DRUG USE FOR UNKNOWN INDICATION
     Dates: start: 19920101, end: 19920101

REACTIONS (1)
  - VOMITING [None]
